FAERS Safety Report 10467338 (Version 3)
Quarter: 2014Q4

REPORT INFORMATION
  Report Type: Spontaneous
  Country: JP (occurrence: JP)
  Receive Date: 20140922
  Receipt Date: 20141108
  Transmission Date: 20150528
  Serious: Yes (Death, Hospitalization)
  Sender: FDA-Public Use
  Company Number: JP-ASTRAZENECA-2014SE59320

PATIENT
  Age: 86 Year
  Sex: Male
  Weight: 51 kg

DRUGS (79)
  1. URSO [Suspect]
     Active Substance: URSODIOL
     Indication: AUTOIMMUNE HEPATITIS
     Dosage: 200 MG, NUMBER OF SEPARATE DOSAGES UNKNOWN
     Route: 048
     Dates: start: 20131025, end: 20131114
  2. HERBESSER [Suspect]
     Active Substance: DILTIAZEM HYDROCHLORIDE
     Indication: HYPERTENSION
     Route: 048
     Dates: start: 20131022, end: 20131114
  3. PREDONINE [Concomitant]
     Active Substance: PREDNISOLONE\PREDNISOLONE ACETATE\PREDNISOLONE SODIUM SUCCINATE
     Dosage: 15 MG, NUMBER OF SEPARATE DOSAGES UNKNOWN
     Route: 048
  4. PREDONINE [Concomitant]
     Active Substance: PREDNISOLONE\PREDNISOLONE ACETATE\PREDNISOLONE SODIUM SUCCINATE
     Route: 048
  5. PREDONINE [Concomitant]
     Active Substance: PREDNISOLONE\PREDNISOLONE ACETATE\PREDNISOLONE SODIUM SUCCINATE
     Route: 048
  6. LASIX [Concomitant]
     Active Substance: FUROSEMIDE
     Route: 041
  7. ALBUMIN TANNATE [Concomitant]
     Active Substance: ALBUMIN BOVINE\TANNIC ACID
     Dosage: NUMBER OF SEPARATE DOSAGES UNKNOWN
     Route: 065
  8. SODIUM CHLORIDE. [Concomitant]
     Active Substance: SODIUM CHLORIDE
     Dosage: NUMBER OF SEPARATE DOSAGES UNKNOWN
     Route: 065
  9. LOPEMIN [Concomitant]
     Active Substance: LOPERAMIDE HYDROCHLORIDE
     Dosage: NUMBER OF SEPARATE DOSAGES UNKNOWN
     Route: 048
  10. OZAGREL NA [Concomitant]
     Dosage: NUMBER OF SEPARATE DOSAGES UNKNOWN
     Route: 041
  11. HEPARIN SODIUM. [Concomitant]
     Active Substance: HEPARIN SODIUM
     Dosage: NUMBER OF SEPARATE DOSAGES UNKNOWN
     Route: 041
  12. LOW-MOLECULAR DEXTRAN L [Concomitant]
     Dosage: NUMBER OF SEPARATE DOSAGES UNKNOWN
     Route: 041
  13. NICARDIPINE HYDROCHLORIDE. [Concomitant]
     Active Substance: NICARDIPINE HYDROCHLORIDE
     Dosage: NUMBER OF SEPARATE DOSAGES UNKNOWN
     Route: 041
     Dates: start: 20131013, end: 20131014
  14. NEXIUM [Suspect]
     Active Substance: ESOMEPRAZOLE MAGNESIUM
     Indication: PROPHYLAXIS AGAINST GASTROINTESTINAL ULCER
     Route: 048
     Dates: start: 20131008, end: 20131008
  15. HARNAL [Suspect]
     Active Substance: TAMSULOSIN HYDROCHLORIDE
     Indication: BENIGN PROSTATIC HYPERPLASIA
     Route: 048
     Dates: start: 20131025, end: 20131114
  16. TAKEPRON [Concomitant]
     Active Substance: LANSOPRAZOLE
     Indication: PROPHYLAXIS AGAINST GASTROINTESTINAL ULCER
  17. GENTACIN [Concomitant]
     Active Substance: GENTAMICIN SULFATE
     Dosage: DOSE UNKNOWN
     Route: 062
  18. LACTEC [Concomitant]
     Active Substance: CALCIUM CHLORIDE ANHYDROUS\POTASSIUM CHLORIDE\SODIUM CHLORIDE\SODIUM LACTATE
     Dosage: NUMBER OF SEPARATE DOSAGES UNKNOWN
     Route: 041
  19. SERENACE [Concomitant]
     Active Substance: HALOPERIDOL
     Dosage: NUMBER OF SEPARATE DOSAGES UNKNOWN
     Route: 041
     Dates: start: 20131011, end: 20131011
  20. SOLDEM 3A [Concomitant]
     Active Substance: CARBOHYDRATES\POTASSIUM CHLORIDE\SODIUM CHLORIDE\SODIUM LACTATE
     Dosage: NUMBER OF SEPARATE DOSAGES UNKNOWN
     Route: 041
     Dates: start: 20131013, end: 20131014
  21. GASTER [Concomitant]
     Active Substance: FAMOTIDINE
     Dosage: NUMBER OF SEPARATE DOSAGES UNKNOWN
     Route: 041
  22. DIGOSIN [Concomitant]
     Active Substance: DIGOXIN
     Dosage: NUMBER OF SEPARATE DOSAGES UNKNOWN
     Route: 041
  23. XYLOCAINE [Concomitant]
     Active Substance: LIDOCAINE HYDROCHLORIDE
     Indication: LOCAL ANAESTHESIA
     Route: 049
  24. SAMSCA [Concomitant]
     Active Substance: TOLVAPTAN
  25. LASIX [Concomitant]
     Active Substance: FUROSEMIDE
     Route: 048
  26. LASIX [Concomitant]
     Active Substance: FUROSEMIDE
     Route: 041
  27. LASIX [Concomitant]
     Active Substance: FUROSEMIDE
     Route: 041
  28. LASIX [Concomitant]
     Active Substance: FUROSEMIDE
     Route: 041
  29. LASIX [Concomitant]
     Active Substance: FUROSEMIDE
     Route: 041
  30. LASIX [Concomitant]
     Active Substance: FUROSEMIDE
     Route: 041
  31. PLAVIX [Concomitant]
     Active Substance: CLOPIDOGREL BISULFATE
     Route: 048
  32. GASTER [Concomitant]
     Active Substance: FAMOTIDINE
     Dosage: NUMBER OF SEPARATE DOSAGES UNKNOWN
     Route: 048
  33. SOLDEM 3A [Concomitant]
     Active Substance: CARBOHYDRATES\POTASSIUM CHLORIDE\SODIUM CHLORIDE\SODIUM LACTATE
     Dosage: NUMBER OF SEPARATE DOSAGES UNKNOWN
     Route: 041
     Dates: start: 20131101, end: 20131118
  34. VASOLAN [Concomitant]
     Active Substance: VERAPAMIL HYDROCHLORIDE
     Dosage: NUMBER OF SEPARATE DOSAGES UNKNOWN
     Route: 041
     Dates: start: 20131104, end: 20131104
  35. SULBACSIN [Concomitant]
     Dosage: NUMBER OF SEPARATE DOSAGES UNKNOWN
     Route: 041
  36. NEXIUM [Suspect]
     Active Substance: ESOMEPRAZOLE MAGNESIUM
     Indication: PROPHYLAXIS AGAINST GASTROINTESTINAL ULCER
     Route: 048
     Dates: start: 20131018, end: 20131019
  37. PLETAAL OD [Suspect]
     Active Substance: CILOSTAZOL
     Indication: CEREBRAL INFARCTION
     Dosage: 400 MG, NUMBER OF SEPARATE DOSAGES UNKNOWN
     Route: 048
     Dates: start: 20131017, end: 20131017
  38. LASIX [Concomitant]
     Active Substance: FUROSEMIDE
     Route: 041
  39. DERMOVATE [Concomitant]
     Active Substance: CLOBETASOL
     Dosage: DOSE UNKNOWN
     Route: 062
  40. BIOFERMIN [Concomitant]
     Active Substance: BACILLUS SUBTILIS\LACTOBACILLUS ACIDOPHILUS\STREPTOCOCCUS FAECAIS
     Dosage: NUMBER OF SEPARATE DOSAGES UNKNOWN
     Route: 048
  41. ALBUMIN [Concomitant]
     Active Substance: ALBUMIN (HUMAN)
     Dosage: NUMBER OF SEPARATE DOSAGES UNKNOWN
     Route: 041
  42. SOLDEM 3A [Concomitant]
     Active Substance: CARBOHYDRATES\POTASSIUM CHLORIDE\SODIUM CHLORIDE\SODIUM LACTATE
     Dosage: NUMBER OF SEPARATE DOSAGES UNKNOWN
     Route: 041
  43. INTRALIPOS [Concomitant]
     Active Substance: SOYBEAN OIL
     Dosage: NUMBER OF SEPARATE DOSAGES UNKNOWN
     Route: 041
  44. XYLOCAINE [Concomitant]
     Active Substance: LIDOCAINE HYDROCHLORIDE
     Indication: LOCAL ANAESTHESIA
     Route: 049
  45. ZOSYN [Concomitant]
     Active Substance: PIPERACILLIN SODIUM\TAZOBACTAM SODIUM
     Dosage: 13.5 G, NUMBER OF SEPARATE DOSAGES UNKNOWN
     Route: 041
  46. NEXIUM [Suspect]
     Active Substance: ESOMEPRAZOLE MAGNESIUM
     Indication: PROPHYLAXIS AGAINST GASTROINTESTINAL ULCER
     Route: 048
     Dates: start: 20131010, end: 20131017
  47. PREDONINE [Concomitant]
     Active Substance: PREDNISOLONE\PREDNISOLONE ACETATE\PREDNISOLONE SODIUM SUCCINATE
     Dosage: 10 MG, NUMBER OF SEPARATE DOSAGES UNKNOWN
     Route: 048
     Dates: end: 20131024
  48. LASIX [Concomitant]
     Active Substance: FUROSEMIDE
     Route: 048
  49. WHITE PETROLATUM [Concomitant]
     Active Substance: PETROLATUM
     Dosage: DOSE UNKNOWN
     Route: 065
  50. HEPARIN SODIUM. [Concomitant]
     Active Substance: HEPARIN SODIUM
     Dosage: NUMBER OF SEPARATE DOSAGES UNKNOWN
     Route: 041
  51. NICARDIPINE HYDROCHLORIDE. [Concomitant]
     Active Substance: NICARDIPINE HYDROCHLORIDE
     Dosage: NUMBER OF SEPARATE DOSAGES UNKNOWN
     Route: 041
     Dates: start: 20131011, end: 20131012
  52. SOLDEM 3A [Concomitant]
     Active Substance: CARBOHYDRATES\POTASSIUM CHLORIDE\SODIUM CHLORIDE\SODIUM LACTATE
     Dosage: NUMBER OF SEPARATE DOSAGES UNKNOWN
     Route: 041
     Dates: start: 20131015, end: 20131016
  53. GASTER [Concomitant]
     Active Substance: FAMOTIDINE
     Dosage: NUMBER OF SEPARATE DOSAGES UNKNOWN
     Route: 041
  54. XYLOCAINE [Concomitant]
     Active Substance: LIDOCAINE HYDROCHLORIDE
     Indication: LOCAL ANAESTHESIA
     Route: 049
  55. XYLOCAINE [Concomitant]
     Active Substance: LIDOCAINE HYDROCHLORIDE
     Indication: LOCAL ANAESTHESIA
     Route: 065
  56. NEXIUM [Suspect]
     Active Substance: ESOMEPRAZOLE MAGNESIUM
     Indication: PROPHYLAXIS AGAINST GASTROINTESTINAL ULCER
     Route: 048
     Dates: start: 20131020, end: 20131024
  57. PLETAAL OD [Suspect]
     Active Substance: CILOSTAZOL
     Indication: CEREBRAL INFARCTION
     Dosage: 100 MG, NUMBER OF SEPARATE DOSAGES UNKNOWN
     Route: 048
     Dates: start: 20131011, end: 20131014
  58. EPADEL S [Concomitant]
     Active Substance: ETHYL ICOSAPENTATE\ICOSAPENT
     Dosage: NUMBER OF SEPARATE DOSAGES UNKNOWN
     Route: 048
  59. ZINC OXIDE. [Concomitant]
     Active Substance: ZINC OXIDE
     Dosage: DOSE UNKNOWN
     Route: 062
  60. MAINTATE [Concomitant]
     Active Substance: BISOPROLOL FUMARATE
     Route: 048
     Dates: start: 20131117, end: 20131120
  61. GASTER [Concomitant]
     Active Substance: FAMOTIDINE
     Dosage: NUMBER OF SEPARATE DOSAGES UNKNOWN
     Route: 041
  62. GASTER [Concomitant]
     Active Substance: FAMOTIDINE
     Dosage: NUMBER OF SEPARATE DOSAGES UNKNOWN
     Route: 041
  63. VASOLAN [Concomitant]
     Active Substance: VERAPAMIL HYDROCHLORIDE
     Dosage: NUMBER OF SEPARATE DOSAGES UNKNOWN
     Route: 041
  64. PLETAAL OD [Suspect]
     Active Substance: CILOSTAZOL
     Indication: CEREBRAL INFARCTION
     Route: 048
     Dates: start: 20131008, end: 20131009
  65. PLETAAL OD [Suspect]
     Active Substance: CILOSTAZOL
     Indication: CEREBRAL INFARCTION
     Dosage: 200 MG, NUMBER OF SEPARATE DOSAGES UNKNOWN
     Route: 048
     Dates: start: 20131015, end: 20131016
  66. FERRUM [Concomitant]
     Active Substance: FERROUS FUMARATE
  67. TARIVID [Concomitant]
     Active Substance: OFLOXACIN
     Dosage: DOSE UNKNOWN
     Route: 062
  68. MAINTATE [Concomitant]
     Active Substance: BISOPROLOL FUMARATE
     Route: 048
  69. NICARDIPINE HYDROCHLORIDE. [Concomitant]
     Active Substance: NICARDIPINE HYDROCHLORIDE
     Dosage: NUMBER OF SEPARATE DOSAGES UNKNOWN
     Route: 041
  70. SERENACE [Concomitant]
     Active Substance: HALOPERIDOL
     Dosage: NUMBER OF SEPARATE DOSAGES UNKNOWN
     Route: 041
  71. SOLDEM 3A [Concomitant]
     Active Substance: CARBOHYDRATES\POTASSIUM CHLORIDE\SODIUM CHLORIDE\SODIUM LACTATE
     Dosage: NUMBER OF SEPARATE DOSAGES UNKNOWN
     Route: 041
     Dates: start: 20131017, end: 20131019
  72. ZOSYN [Concomitant]
     Active Substance: PIPERACILLIN SODIUM\TAZOBACTAM SODIUM
     Dosage: 9 G, NUMBER OF SEPARATE DOSAGES UNKNOWN
     Route: 041
  73. PREDONINE [Concomitant]
     Active Substance: PREDNISOLONE\PREDNISOLONE ACETATE\PREDNISOLONE SODIUM SUCCINATE
     Route: 048
  74. LASIX [Concomitant]
     Active Substance: FUROSEMIDE
     Route: 048
  75. EPADEL S [Concomitant]
     Active Substance: ETHYL ICOSAPENTATE\ICOSAPENT
     Route: 048
  76. AZUNOL [Concomitant]
     Active Substance: SODIUM GUALENATE
     Dosage: DOSE UNKNOWN
     Route: 062
  77. POLARAMINE [Concomitant]
     Active Substance: DEXCHLORPHENIRAMINE MALEATE
     Indication: URTICARIA
     Dosage: NUMBER OF SEPARATE DOSAGES UNKNOWN
     Route: 048
  78. MAINTATE [Concomitant]
     Active Substance: BISOPROLOL FUMARATE
     Dosage: NUMBER OF SEPARATE DOSAGES UNKNOWN
     Route: 048
     Dates: start: 20131121, end: 20131121
  79. PRIMPERAN [Concomitant]
     Active Substance: METOCLOPRAMIDE HYDROCHLORIDE
     Dosage: NUMBER OF SEPARATE DOSAGES UNKNOWN
     Route: 041

REACTIONS (11)
  - Renal failure [Unknown]
  - Staphylococcal infection [Unknown]
  - Anuria [Unknown]
  - Hypophagia [Unknown]
  - Cerebral hyperperfusion syndrome [Unknown]
  - Pneumonia aspiration [Fatal]
  - Altered state of consciousness [Unknown]
  - Sepsis [Unknown]
  - Toxic epidermal necrolysis [Fatal]
  - Diarrhoea [Unknown]
  - Drug eruption [Unknown]

NARRATIVE: CASE EVENT DATE: 2013
